FAERS Safety Report 16710360 (Version 1)
Quarter: 2019Q3

REPORT INFORMATION
  Report Type: Spontaneous
  Country: EG (occurrence: EG)
  Receive Date: 20190816
  Receipt Date: 20190816
  Transmission Date: 20191004
  Serious: Yes (Death, Other)
  Sender: FDA-Public Use
  Company Number: EG-HIKMA PHARMACEUTICALS USA INC.-EG-H14001-19-04609

PATIENT
  Age: 50 Year
  Sex: Female
  Weight: 59 kg

DRUGS (4)
  1. CARBOTINOL [Suspect]
     Active Substance: CARBOPLATIN
     Indication: OVARIAN CANCER METASTATIC
     Dosage: 3RD DOSE
     Route: 042
  2. UNITAXEL [Suspect]
     Active Substance: PACLITAXEL
     Indication: OVARIAN CANCER METASTATIC
     Dosage: 3RD DOSE
     Route: 042
  3. UNITAXEL [Suspect]
     Active Substance: PACLITAXEL
     Indication: METASTASES TO LUNG
  4. CARBOTINOL [Suspect]
     Active Substance: CARBOPLATIN
     Indication: METASTASES TO LUNG

REACTIONS (4)
  - Cardiac arrest [Fatal]
  - Hypotension [Fatal]
  - Dyspnoea [Fatal]
  - Erythema [Fatal]
